FAERS Safety Report 5986146-5 (Version None)
Quarter: 2008Q4

REPORT INFORMATION
  Report Type: 
  Country: None (occurrence: None)
  Receive Date: 20081205
  Receipt Date: 20081205
  Transmission Date: 20090506
  Serious: No
  Sender: FDA-Public Use
  Company Number: None

PATIENT
  Age: 87 Year
  Sex: Female

DRUGS (1)
  1. LEXISCAN [Suspect]
     Indication: CARDIAC STRESS TEST
     Dosage: 04.MG/5ML  ONCE IV BOLUS, 1 DOSE
     Route: 040
     Dates: start: 20081202, end: 20081202

REACTIONS (5)
  - BACK PAIN [None]
  - CONTRAST MEDIA REACTION [None]
  - CRYING [None]
  - PAIN IN EXTREMITY [None]
  - SCREAMING [None]
